FAERS Safety Report 22107278 (Version 2)
Quarter: 2024Q2

REPORT INFORMATION
  Report Type: Spontaneous
  Country: US (occurrence: US)
  Receive Date: 20230317
  Receipt Date: 20240408
  Transmission Date: 20240716
  Serious: No
  Sender: FDA-Public Use
  Company Number: US-UCBSA-2022063171

PATIENT
  Sex: Female

DRUGS (1)
  1. BRIVIACT [Suspect]
     Active Substance: BRIVARACETAM
     Indication: Product used for unknown indication
     Dosage: 50 MICROGRAM, 2X/DAY (BID)
     Route: 048

REACTIONS (6)
  - Emotional disorder [Unknown]
  - Anxiety [Unknown]
  - Stress [Unknown]
  - Impaired driving ability [Unknown]
  - Product availability issue [Unknown]
  - Product dose omission issue [Unknown]
